FAERS Safety Report 9477817 (Version 1)
Quarter: 2013Q3

REPORT INFORMATION
  Report Type: Spontaneous
  Country: GB (occurrence: None)
  Receive Date: 20130822
  Receipt Date: 20130822
  Transmission Date: 20140515
  Serious: Yes (Life-Threatening, Hospitalization, Disabling, Other)
  Sender: FDA-Public Use
  Company Number: AUR-APL-2013-06716

PATIENT
  Age: 42 Year
  Sex: Female

DRUGS (3)
  1. LAMOTRIGINE (LAMOTRIGINE) [Suspect]
     Indication: EPILEPSY
     Dosage: (25MG, 1D) ORAL
     Route: 048
     Dates: start: 20121012, end: 20121028
  2. LORAZEPAM LORAZEPAN) [Concomitant]
  3. THYROXINE (LEVOTHYROXINE SODIUM) [Concomitant]

REACTIONS (12)
  - Stevens-Johnson syndrome [None]
  - Thrombocytopenia [None]
  - Contusion [None]
  - Haemorrhage [None]
  - Dyspnoea [None]
  - Hypotension [None]
  - Dysuria [None]
  - Mouth ulceration [None]
  - Bedridden [None]
  - Anaemia [None]
  - Biopsy bone marrow abnormal [None]
  - Chest X-ray abnormal [None]
